FAERS Safety Report 5678151-3 (Version None)
Quarter: 2008Q1

REPORT INFORMATION
  Report Type: 
  Country: None (occurrence: None)
  Receive Date: 20080319
  Receipt Date: 20080304
  Transmission Date: 20080703
  Serious: Yes (Other)
  Sender: FDA-Public Use
  Company Number: 2008S1004415

PATIENT
  Age: 56 Year
  Sex: Female

DRUGS (5)
  1. NEBIVOLOL HCL [Suspect]
     Indication: ESSENTIAL HYPERTENSION
     Dosage: 5 MG;DAILY; ORAL
     Route: 048
     Dates: start: 20050101, end: 20070701
  2. METHOTREXATE [Suspect]
     Indication: MUSCULOSKELETAL PAIN
     Dosage: ORAL
     Route: 048
     Dates: start: 20051201, end: 20060118
  3. ACECLOFENAC (ACECLOFENAC) [Suspect]
     Indication: MUSCULOSKELETAL PAIN
     Dates: start: 20060101, end: 20060101
  4. FENOFIBRATE [Suspect]
     Indication: MIXED HYPERLIPIDAEMIA
     Dates: start: 20051201, end: 20060121
  5. ACETAMINOPHEN [Suspect]
     Dates: end: 20060101

REACTIONS (1)
  - CYTOLYTIC HEPATITIS [None]
